FAERS Safety Report 12971844 (Version 6)
Quarter: 2017Q1

REPORT INFORMATION
  Report Type: Spontaneous
  Country: US (occurrence: US)
  Receive Date: 20161124
  Receipt Date: 20170102
  Transmission Date: 20170428
  Serious: Yes (Other)
  Sender: FDA-Public Use
  Company Number: US-CIPLA LTD.-2016US21758

PATIENT

DRUGS (2)
  1. TOPIRAMATE. [Suspect]
     Active Substance: TOPIRAMATE
     Indication: MIGRAINE
     Dosage: 25 MG, QD, NIGHT
     Route: 048
     Dates: start: 2015
  2. TOPIRAMATE. [Suspect]
     Active Substance: TOPIRAMATE
     Indication: HEADACHE
     Dosage: UNK, HALF OF THE PRESCRIBED DOSAGE
     Route: 048

REACTIONS (5)
  - Dyskinesia [Not Recovered/Not Resolved]
  - Migraine [Recovering/Resolving]
  - Off label use [Unknown]
  - Treatment noncompliance [Unknown]
  - Tremor [Not Recovered/Not Resolved]
